FAERS Safety Report 5088983-0 (Version None)
Quarter: 2006Q3

REPORT INFORMATION
  Report Type: 
  Country: None (occurrence: None)
  Receive Date: 20060825
  Receipt Date: 20060816
  Transmission Date: 20061208
  Serious: Yes (Hospitalization, Other)
  Sender: FDA-Public Use
  Company Number: PHNU2006DE02801

PATIENT
  Sex: Male
  Weight: 86.8 kg

DRUGS (2)
  1. ZOMETA [Suspect]
     Indication: MULTIPLE MYELOMA
     Dosage: 4 MG, QMO
     Route: 042
  2. ZOMETA [Suspect]
     Dosage: 4 MG EVERY 8 WEEKS
     Route: 042
     Dates: start: 20010128

REACTIONS (5)
  - OSTEOMYELITIS CHRONIC [None]
  - OSTEONECROSIS [None]
  - PRIMARY SEQUESTRUM [None]
  - WOUND DEBRIDEMENT [None]
  - WOUND DEHISCENCE [None]
